FAERS Safety Report 21183682 (Version 2)
Quarter: 2022Q3

REPORT INFORMATION
  Report Type: Report from Study
  Country: US (occurrence: US)
  Receive Date: 20220808
  Receipt Date: 20220912
  Transmission Date: 20221027
  Serious: Yes (Other)
  Sender: FDA-Public Use
  Company Number: US-GILEAD-2022-0592599

PATIENT
  Age: 19 Year
  Sex: Female

DRUGS (27)
  1. AZTREONAM LYSINE [Suspect]
     Active Substance: AZTREONAM LYSINE
     Indication: Product used for unknown indication
     Dosage: 75 MG, TID, 28 DAYS ON/28 DAYS OFF
     Route: 055
  2. TOBRAMYCIN [Concomitant]
     Active Substance: TOBRAMYCIN
  3. GAS-X [Concomitant]
     Active Substance: DIMETHICONE
  4. MOTRIN [Concomitant]
     Active Substance: IBUPROFEN
  5. TOBI [Concomitant]
     Active Substance: TOBRAMYCIN
  6. POLY-VI-SOL [ASCORBIC ACID;COLECALCIFEROL;NICOTINAMIDE;RETINOL;RIBOFLA [Concomitant]
  7. LAMICTAL [Concomitant]
     Active Substance: LAMOTRIGINE
  8. FLOVENT [Concomitant]
     Active Substance: FLUTICASONE PROPIONATE
  9. PEPCID [Concomitant]
     Active Substance: FAMOTIDINE
  10. ALBUTEROL [Concomitant]
     Active Substance: ALBUTEROL
  11. MILK OF MAGNESIA [Concomitant]
     Active Substance: MAGNESIUM HYDROXIDE
  12. CUVITRU [Concomitant]
     Active Substance: HUMAN IMMUNOGLOBULIN G
  13. BENADRYL [Concomitant]
     Active Substance: DIPHENHYDRAMINE HYDROCHLORIDE
  14. GABAPENTIN [Concomitant]
     Active Substance: GABAPENTIN
  15. MCT OIL [COCOS NUCIFERA OIL] [Concomitant]
  16. VIT D [VITAMIN D NOS] [Concomitant]
  17. XYZAL [Concomitant]
     Active Substance: LEVOCETIRIZINE DIHYDROCHLORIDE
  18. DIAZEPAM [Concomitant]
     Active Substance: DIAZEPAM
  19. LEVOCARNITINE [Concomitant]
     Active Substance: LEVOCARNITINE
  20. BACLOFEN [Concomitant]
     Active Substance: BACLOFEN
  21. MINERALS\VITAMINS [Concomitant]
     Active Substance: MINERALS\VITAMINS
  22. CARAFATE [Concomitant]
     Active Substance: SUCRALFATE
  23. RECTIV [Concomitant]
     Active Substance: NITROGLYCERIN
  24. FLUTICASONE PROPIONATE [Concomitant]
     Active Substance: FLUTICASONE PROPIONATE
  25. PREVACID [Concomitant]
     Active Substance: LANSOPRAZOLE
  26. EPINEPHRINE [Concomitant]
     Active Substance: EPINEPHRINE
  27. CIPRO [Concomitant]
     Active Substance: CIPROFLOXACIN HYDROCHLORIDE

REACTIONS (5)
  - Pseudomonas infection [Unknown]
  - Infection [Unknown]
  - Somnolence [Unknown]
  - Oropharyngeal suctioning [Unknown]
  - COVID-19 [Recovered/Resolved]

NARRATIVE: CASE EVENT DATE: 20220601
